FAERS Safety Report 13238979 (Version 1)
Quarter: 2017Q1

REPORT INFORMATION
  Report Type: Spontaneous
  Country: US (occurrence: US)
  Receive Date: 20170216
  Receipt Date: 20170216
  Transmission Date: 20170428
  Serious: Yes (Other)
  Sender: FDA-Public Use
  Company Number: GXBR2017US000804

PATIENT
  Age: 80 Year
  Sex: Male

DRUGS (2)
  1. NADOLOL. [Suspect]
     Active Substance: NADOLOL
     Indication: MIGRAINE PROPHYLAXIS
     Dosage: 80 MG, QD
     Route: 048
     Dates: end: 201701
  2. NADOLOL. [Suspect]
     Active Substance: NADOLOL
     Dosage: 20 MG, QD
     Route: 048
     Dates: start: 201701

REACTIONS (2)
  - Fall [Unknown]
  - Product use issue [Unknown]
